FAERS Safety Report 16625464 (Version 1)
Quarter: 2019Q3

REPORT INFORMATION
  Report Type: Spontaneous
  Country: US (occurrence: US)
  Receive Date: 20190724
  Receipt Date: 20190724
  Transmission Date: 20191004
  Serious: No
  Sender: FDA-Public Use
  Company Number: US-PFIZER INC-2019317551

PATIENT
  Age: 48 Year
  Sex: Male
  Weight: 68.27 kg

DRUGS (3)
  1. NEURONTIN [Suspect]
     Active Substance: GABAPENTIN
     Indication: PAIN
     Dosage: 1200 MG, DAILY (DOSE: 2 IN AM, 1 IN AFTERNOON, 1 IN PM X 3 DAYS)
     Dates: start: 20190603
  2. NEURONTIN [Suspect]
     Active Substance: GABAPENTIN
     Dosage: 600 MG, 3X/DAY (2 CAP TID (THREE TIME A DAY))
  3. NEURONTIN [Suspect]
     Active Substance: GABAPENTIN
     Dosage: 1500 MG, DAILY (2 AM, 2 AFTERNOON, 1 PM X 3 DAYS)

REACTIONS (1)
  - Drug ineffective [Unknown]
